FAERS Safety Report 4846094-0 (Version None)
Quarter: 2005Q4

REPORT INFORMATION
  Report Type: 
  Country: None (occurrence: None)
  Receive Date: 20051201
  Receipt Date: 20051121
  Transmission Date: 20060501
  Serious: Yes (Disabling, Other)
  Sender: FDA-Public Use
  Company Number: 2005159328

PATIENT
  Age: 51 Year
  Sex: Male

DRUGS (16)
  1. VIAGRA [Suspect]
     Indication: ERECTILE DYSFUNCTION
     Dosage: 50 MG (50 MG, AS NECESSARY),
  2. CIALIS [Suspect]
     Indication: ERECTILE DYSFUNCTION
  3. PRILOSEC [Concomitant]
  4. ALL OTHER THERAPEUTIC PRODUCTS (ALL OTHER THERAPEUTIC PRODUCTS) [Concomitant]
  5. ALTACE [Concomitant]
  6. NORVASC [Concomitant]
  7. TRIAVIL (AMITRIPTYLINE HYDROCHLORIDE, PERPHENAZINE) [Concomitant]
  8. LIPITOR [Concomitant]
  9. LEVOTHROID [Concomitant]
  10. ZOCOR [Concomitant]
  11. ASPIRIN [Concomitant]
  12. CENTRUM (MINERALS NOS, VITAMINS NOS) [Concomitant]
  13. AMTRIPTYLINE (AMITRIPTYLINE) [Concomitant]
  14. MOBIC [Concomitant]
  15. SKELAXIN [Concomitant]
  16. CALAN [Concomitant]

REACTIONS (8)
  - BLOOD PRESSURE ABNORMAL [None]
  - CARDIOVASCULAR DISORDER [None]
  - DIABETES MELLITUS INADEQUATE CONTROL [None]
  - DRUG INEFFECTIVE [None]
  - EATING DISORDER [None]
  - ERECTILE DYSFUNCTION [None]
  - SLEEP DISORDER [None]
  - WEIGHT INCREASED [None]
